FAERS Safety Report 7243197-0 (Version None)
Quarter: 2011Q1

REPORT INFORMATION
  Report Type: 
  Country: None (occurrence: None)
  Receive Date: 20110125
  Receipt Date: 20110118
  Transmission Date: 20110831
  Serious: Yes (Hospitalization)
  Sender: FDA-Public Use
  Company Number: FR-ROCHE-732306

PATIENT
  Sex: Female

DRUGS (5)
  1. NOLVADEX [Concomitant]
     Dates: start: 20050101
  2. ARIMIDEX [Concomitant]
  3. FLUOROURACIL [Suspect]
     Indication: BREAST CANCER
     Dosage: DRUG AS: FLUOROURACILE WINTHROP
     Route: 042
     Dates: start: 20100917, end: 20100919
  4. TAXOTERE [Suspect]
     Indication: BREAST CANCER
     Dosage: INFUSION, 100 MG/ME2
     Route: 042
     Dates: start: 20100917, end: 20100917
  5. AVASTIN [Suspect]
     Indication: BREAST CANCER
     Route: 042
     Dates: start: 20100917, end: 20100917

REACTIONS (3)
  - STOMATITIS [None]
  - DIARRHOEA [None]
  - NEUTROPENIA [None]
